FAERS Safety Report 16536947 (Version 4)
Quarter: 2019Q3

REPORT INFORMATION
  Report Type: Spontaneous
  Country: PL (occurrence: PL)
  Receive Date: 20190707
  Receipt Date: 20190711
  Transmission Date: 20191004
  Serious: Yes (Other)
  Sender: FDA-Public Use
  Company Number: PHHY2019PL151438

PATIENT
  Age: 10 Year
  Sex: Male

DRUGS (1)
  1. CICLOSPORIN [Suspect]
     Active Substance: CYCLOSPORINE
     Indication: NEPHROTIC SYNDROME
     Dosage: 5.5 MG/KG, Q24H
     Route: 065
     Dates: start: 2012, end: 2014

REACTIONS (12)
  - Disease recurrence [Unknown]
  - Blood pressure inadequately controlled [Unknown]
  - Drug ineffective [Unknown]
  - Toxicity to various agents [Unknown]
  - Nephropathy toxic [Unknown]
  - Growth disorder [Unknown]
  - Proteinuria [Unknown]
  - Pneumonia [Unknown]
  - Hyperuricaemia [Unknown]
  - Nephrotic syndrome [Unknown]
  - Hirsutism [Unknown]
  - Hypomagnesaemia [Unknown]
